FAERS Safety Report 4949060-X (Version None)
Quarter: 2006Q1

REPORT INFORMATION
  Report Type: 
  Country: None (occurrence: None)
  Receive Date: 20060321
  Receipt Date: 20060313
  Transmission Date: 20060701
  Serious: Yes (Hospitalization)
  Sender: FDA-Public Use
  Company Number: 438283

PATIENT
  Age: 67 Year
  Sex: Female

DRUGS (1)
  1. DILATREND [Suspect]
     Indication: DRUG USE FOR UNKNOWN INDICATION
     Dosage: 12.5MG PER DAY
     Route: 048
     Dates: start: 20050215, end: 20050228

REACTIONS (8)
  - CARDIAC FAILURE [None]
  - CELLULITIS [None]
  - DYSPNOEA [None]
  - MENTAL IMPAIRMENT [None]
  - MYOCARDIAL OEDEMA [None]
  - PERICARDIAL EFFUSION [None]
  - PULMONARY OEDEMA [None]
  - THINKING ABNORMAL [None]
